FAERS Safety Report 19272894 (Version 1)
Quarter: 2021Q2

REPORT INFORMATION
  Report Type: Spontaneous
  Country: US (occurrence: US)
  Receive Date: 20210518
  Receipt Date: 20210518
  Transmission Date: 20210717
  Serious: No
  Sender: FDA-Public Use
  Company Number: US-BANNER LIFE SCIENCES, LLC-2021BAN000020

PATIENT

DRUGS (2)
  1. BAFIERTAM [Suspect]
     Active Substance: MONOMETHYL FUMARATE
     Indication: MULTIPLE SCLEROSIS
     Dosage: 95 MG, BID
     Route: 048
     Dates: start: 20210316
  2. BAFIERTAM [Suspect]
     Active Substance: MONOMETHYL FUMARATE
     Dosage: 190 MG, BID
     Route: 048
     Dates: start: 202103

REACTIONS (1)
  - Flushing [Not Recovered/Not Resolved]

NARRATIVE: CASE EVENT DATE: 20210316
